FAERS Safety Report 9136976 (Version 1)
Quarter: 2013Q1

REPORT INFORMATION
  Report Type: Spontaneous
  Country: ES (occurrence: ES)
  Receive Date: 20130304
  Receipt Date: 20130304
  Transmission Date: 20140127
  Serious: Yes (Hospitalization)
  Sender: FDA-Public Use
  Company Number: ES-PFIZER INC-2013073350

PATIENT
  Age: 78 Year
  Sex: Female

DRUGS (6)
  1. ALDACTONE [Suspect]
     Indication: ASCITES
     Dosage: 100 MG, DAILY
     Route: 048
     Dates: start: 20120625, end: 20120713
  2. ORFIDAL [Interacting]
     Indication: INSOMNIA
     Dosage: 0.5 MG, DAILY
     Route: 048
     Dates: start: 20120615, end: 20120713
  3. SEGURIL [Interacting]
     Indication: ASCITES
     Dosage: 120 MG, DAILY
     Route: 048
     Dates: start: 20120625, end: 20120713
  4. NOLOTIL /NOR/ [Concomitant]
     Indication: PAIN
     Dosage: 1.7 G, 1X/DAY
     Route: 048
     Dates: start: 20120712, end: 20120713
  5. VANDRAL [Concomitant]
     Indication: DEPRESSION
     Dosage: 75 MG, 1X/DAY
     Route: 048
     Dates: end: 20120713
  6. ZALDIAR [Concomitant]
     Indication: PAIN
     Dosage: UNK
     Route: 048
     Dates: start: 20120712, end: 20120716

REACTIONS (2)
  - Hepatic encephalopathy [Recovered/Resolved]
  - Drug interaction [Recovered/Resolved]
